FAERS Safety Report 5267043-X (Version None)
Quarter: 2007Q1

REPORT INFORMATION
  Report Type: 
  Country: None (occurrence: None)
  Receive Date: 20061213
  Receipt Date: 20030114
  Transmission Date: 20070707
  Serious: No
  Sender: FDA-Public Use
  Company Number: 2003UW00553

PATIENT

DRUGS (1)
  1. TAMOXIFEN CITRATE [Suspect]
     Dates: end: 19930101

REACTIONS (1)
  - METASTASES TO CENTRAL NERVOUS SYSTEM [None]
